FAERS Safety Report 7813090-0 (Version None)
Quarter: 2011Q4

REPORT INFORMATION
  Report Type: 
  Country: None (occurrence: None)
  Receive Date: 20111013
  Receipt Date: 20111010
  Transmission Date: 20120403
  Serious: Yes (Death, Other)
  Sender: FDA-Public Use
  Company Number: PHEH2010US00462

PATIENT
  Sex: Male
  Weight: 108.84 kg

DRUGS (21)
  1. LOSARTAN POTASSIUM [Concomitant]
     Dosage: 100 MG, QD
  2. TYLENOL-500 [Concomitant]
     Indication: HEADACHE
  3. DROPERIDOL [Concomitant]
  4. CLINDAMYCIN [Concomitant]
     Dosage: 150 MG, QD
  5. PROPOFOL [Concomitant]
  6. CLONIDINE [Concomitant]
     Dosage: 0.2 MG, QD
  7. AREDIA [Suspect]
     Dosage: UNK, MONTHLY
     Dates: start: 20040102, end: 20050601
  8. LEVOTHYROXINE SODIUM [Concomitant]
     Dosage: 0.1 MG, QD
     Route: 048
  9. ZOMETA [Suspect]
     Dosage: 4 MG, QMO
     Route: 042
     Dates: start: 20031006
  10. TYLENOL-500 [Concomitant]
     Indication: PYREXIA
  11. AVAPRO [Concomitant]
     Dosage: 150 MG, BID
     Route: 048
  12. SUNITINIB MALATE [Concomitant]
     Dosage: 25 MG, QD
  13. MORPHINE SULFATE [Concomitant]
     Dosage: 30 MG, 2 EVERY 8 HOURS
  14. DOXYCYCLINE [Concomitant]
  15. SYNTHROID [Concomitant]
  16. BENADRYL [Concomitant]
     Indication: INSOMNIA
     Dosage: 25 MG, QH
     Route: 048
  17. MAGNESIUM CITRATE [Concomitant]
  18. FENTANYL [Concomitant]
  19. HYDROCHLOROTHIAZIDE [Concomitant]
     Dosage: 25 MG, QD
  20. METROGEL [Concomitant]
  21. FERROUS SULFATE TAB [Concomitant]

REACTIONS (27)
  - OSTEOMYELITIS [None]
  - URETHRAL OBSTRUCTION [None]
  - HAEMOPTYSIS [None]
  - HYPOKALAEMIA [None]
  - CONJUNCTIVITIS [None]
  - SINUS BRADYCARDIA [None]
  - DEATH [None]
  - PAIN [None]
  - EXPOSED BONE IN JAW [None]
  - DYSPNOEA [None]
  - MULTIPLE INJURIES [None]
  - LUNG NEOPLASM [None]
  - NEPHROLITHIASIS [None]
  - CONSTIPATION [None]
  - OSTEOPOROSIS [None]
  - ANHEDONIA [None]
  - OSTEONECROSIS OF JAW [None]
  - GENERAL PHYSICAL HEALTH DETERIORATION [None]
  - ANXIETY [None]
  - URINARY RETENTION [None]
  - URETHRAL STENOSIS [None]
  - PLEURAL EFFUSION [None]
  - LYMPHADENOPATHY [None]
  - DECREASED INTEREST [None]
  - PHYSICAL DISABILITY [None]
  - PAPILLOMA VIRAL INFECTION [None]
  - CHOLELITHIASIS [None]
